FAERS Safety Report 8583584-1 (Version None)
Quarter: 2012Q3

REPORT INFORMATION
  Report Type: 
  Country: None (occurrence: None)
  Receive Date: 20120809
  Receipt Date: 20120730
  Transmission Date: 20120928
  Serious: No
  Sender: FDA-Public Use
  Company Number: US-ASTRAZENECA-2012SE54112

PATIENT
  Age: 46 Year
  Sex: Female

DRUGS (4)
  1. PRILOSEC OTC [Suspect]
     Route: 048
  2. HIGH BLOOD PRESSURE MEDICATION [Concomitant]
     Indication: HYPERTENSION
  3. SIMVASTATIN [Concomitant]
  4. NEXIUM [Suspect]
     Route: 048

REACTIONS (3)
  - GASTRIC DISORDER [None]
  - DRUG INEFFECTIVE [None]
  - DRUG DOSE OMISSION [None]
